FAERS Safety Report 7215858-0 (Version None)
Quarter: 2011Q1

REPORT INFORMATION
  Report Type: 
  Country: None (occurrence: None)
  Receive Date: 20110107
  Receipt Date: 20101223
  Transmission Date: 20110831
  Serious: Yes (Other)
  Sender: FDA-Public Use
  Company Number: GB-GENENTECH-311896

PATIENT
  Age: 65 Year
  Sex: Male

DRUGS (11)
  1. AZATHIOPRINE [Concomitant]
     Indication: PRODUCT USED FOR UNKNOWN INDICATION
     Dosage: UNK
     Dates: end: 20080701
  2. RITUXIMAB [Suspect]
     Indication: RENAL VASCULITIS
     Dosage: 375 MG/M2, 1/WEEK
     Route: 065
     Dates: start: 20080901, end: 20081001
  3. MYCOPHENOLATE MOFETIL [Suspect]
     Dosage: 1 G, BID
     Route: 065
     Dates: start: 20080701, end: 20080901
  4. PREDNISOLONE [Suspect]
     Indication: RENAL VASCULITIS
     Dosage: 80 MG, UNK
     Route: 065
     Dates: start: 20071101
  5. COTRIM [Concomitant]
     Indication: BLOOD CREATININE INCREASED
     Dosage: UNK
     Dates: start: 20071101
  6. CYCLOPHOSPHAMIDE [Concomitant]
     Indication: PRODUCT USED FOR UNKNOWN INDICATION
     Dosage: 200 MG, X1
     Dates: start: 20071101, end: 20080401
  7. PREDNISOLONE [Suspect]
     Dosage: 25 MG, UNK
     Route: 065
     Dates: start: 20080901
  8. METHYLPREDNISOLONE [Concomitant]
     Indication: VASCULITIS
     Dosage: UNK
     Route: 042
  9. RITUXIMAB [Suspect]
     Dosage: 375 MG/M2, 1/WEEK
     Route: 065
     Dates: start: 20090501, end: 20091201
  10. MYCOPHENOLATE MOFETIL [Suspect]
     Indication: RENAL VASCULITIS
     Dosage: 1 G, BID
     Route: 065
     Dates: start: 20080201
  11. MYCOPHENOLATE MOFETIL [Suspect]
     Dosage: UNK
     Route: 065

REACTIONS (1)
  - CUSHING'S SYNDROME [None]
